FAERS Safety Report 8177472-2 (Version None)
Quarter: 2012Q1

REPORT INFORMATION
  Report Type: 
  Country: None (occurrence: None)
  Receive Date: 20120301
  Receipt Date: 20120224
  Transmission Date: 20120608
  Serious: Yes (Hospitalization)
  Sender: FDA-Public Use
  Company Number: US-PURDUE-USA-2012-0081831

PATIENT
  Sex: Female

DRUGS (5)
  1. PERCOCET [Concomitant]
     Indication: BREAKTHROUGH PAIN
     Dosage: UNK
  2. OXYCONTIN [Suspect]
     Indication: RHEUMATOID ARTHRITIS
  3. OXYCONTIN [Suspect]
     Indication: PAIN
     Dosage: 40 MG, DAILY
     Route: 048
     Dates: end: 20120220
  4. OXYCONTIN [Suspect]
     Indication: NEUROPATHY PERIPHERAL
  5. OXYCONTIN [Suspect]
     Indication: FIBROMYALGIA

REACTIONS (9)
  - PEPTIC ULCER [None]
  - VOMITING [None]
  - FEELING COLD [None]
  - TREMOR [None]
  - DRUG WITHDRAWAL SYNDROME [None]
  - DYSKINESIA [None]
  - MALAISE [None]
  - NAUSEA [None]
  - DIARRHOEA [None]
